FAERS Safety Report 5017375-5 (Version None)
Quarter: 2006Q2

REPORT INFORMATION
  Report Type: 
  Country: None (occurrence: None)
  Receive Date: 20060601
  Receipt Date: 20060601
  Transmission Date: 20061013
  Serious: No
  Sender: FDA-Public Use
  Company Number: None

PATIENT
  Sex: Male
  Weight: 146.9654 kg

DRUGS (1)
  1. VENLAFAXINE XR , WYETH-AYERST [Suspect]
     Indication: MAJOR DEPRESSION
     Dosage: 37.5 1X/DAY ORAL
     Route: 048
     Dates: start: 20060524, end: 20060526

REACTIONS (1)
  - HYPOGLYCAEMIA [None]
